FAERS Safety Report 4304596-X (Version None)
Quarter: 2004Q1

REPORT INFORMATION
  Report Type: 
  Country: None (occurrence: None)
  Receive Date: 20040225
  Receipt Date: 20040225
  Transmission Date: 20041129
  Serious: Yes (Hospitalization)
  Sender: FDA-Public Use
  Company Number: None

PATIENT
  Age: 57 Year
  Sex: Female

DRUGS (2)
  1. INNOHEP [Suspect]
     Indication: DEEP VEIN THROMBOSIS
     Dosage: DAILY SQ
     Route: 058
     Dates: start: 20040104, end: 20040113
  2. COUMADIN [Concomitant]

REACTIONS (2)
  - HAEMATOMA [None]
  - INJECTION SITE HAEMORRHAGE [None]
